FAERS Safety Report 9943578 (Version 2)
Quarter: 2014Q1

REPORT INFORMATION
  Report Type: Report from Study
  Country: None (occurrence: US)
  Receive Date: 20140303
  Receipt Date: 20140303
  Transmission Date: 20141002
  Serious: No
  Sender: FDA-Public Use
  Company Number: US-ABBVIE-12P-163-1028521-00

PATIENT
  Age: 49 Year
  Sex: Female

DRUGS (10)
  1. HUMIRA [Suspect]
     Indication: PSORIASIS
     Dates: start: 201212, end: 20130213
  2. FLEXERIL [Concomitant]
     Indication: BACK PAIN
     Dosage: AT BEDTIME
  3. MOBIC [Concomitant]
     Indication: BACK PAIN
  4. MOBIC [Concomitant]
     Indication: ARTHRITIS
  5. TRAMADOL [Concomitant]
     Indication: BACK PAIN
     Dosage: 1-2 TABLETS UP TO FOUR TIMES PER DAY
  6. XANAX [Concomitant]
     Indication: ANXIETY
  7. MISOPROSTOL [Concomitant]
     Indication: PROPHYLAXIS AGAINST GASTROINTESTINAL ULCER
  8. CELEXA [Concomitant]
     Indication: DEPRESSION
     Dosage: 1 - 2 TABLETS DAILY
  9. MIRALAX [Concomitant]
     Indication: CONSTIPATION
  10. CLOBEX [Concomitant]
     Indication: PSORIASIS

REACTIONS (11)
  - Inappropriate schedule of drug administration [Not Recovered/Not Resolved]
  - Hypoaesthesia [Not Recovered/Not Resolved]
  - Hypoaesthesia [Not Recovered/Not Resolved]
  - Hypoaesthesia oral [Not Recovered/Not Resolved]
  - Intranasal hypoaesthesia [Not Recovered/Not Resolved]
  - Paraesthesia [Not Recovered/Not Resolved]
  - Paraesthesia [Not Recovered/Not Resolved]
  - Paraesthesia oral [Not Recovered/Not Resolved]
  - Intranasal paraesthesia [Not Recovered/Not Resolved]
  - Psoriasis [Not Recovered/Not Resolved]
  - Injection site pain [Not Recovered/Not Resolved]
